FAERS Safety Report 21512605 (Version 1)
Quarter: 2022Q4

REPORT INFORMATION
  Report Type: Spontaneous
  Country: TR (occurrence: None)
  Receive Date: 20221027
  Receipt Date: 20221027
  Transmission Date: 20230113
  Serious: Yes (Other)
  Sender: FDA-Public Use
  Company Number: 2022A352439

PATIENT
  Sex: Male
  Weight: 140 kg

DRUGS (1)
  1. BYETTA [Suspect]
     Active Substance: EXENATIDE
     Route: 065
     Dates: start: 20220930

REACTIONS (2)
  - Carcinoembryonic antigen increased [Unknown]
  - Abdominal pain [Unknown]
